FAERS Safety Report 5190740-1 (Version None)
Quarter: 2006Q4

REPORT INFORMATION
  Report Type: 
  Country: None (occurrence: None)
  Receive Date: 20061215
  Receipt Date: 20061130
  Transmission Date: 20070319
  Serious: Yes (Life-Threatening, Hospitalization)
  Sender: FDA-Public Use
  Company Number: DSA_28173_2006

PATIENT
  Age: 26 Year
  Sex: Male

DRUGS (1)
  1. TAVOR [Suspect]
     Dosage: 80 MG ONCE PO
     Route: 048
     Dates: start: 20060506, end: 20060506

REACTIONS (3)
  - INTENTIONAL OVERDOSE [None]
  - MYDRIASIS [None]
  - SOMNOLENCE [None]
